FAERS Safety Report 16807560 (Version 3)
Quarter: 2019Q3

REPORT INFORMATION
  Report Type: Spontaneous
  Country: US (occurrence: US)
  Receive Date: 20190914
  Receipt Date: 20190924
  Transmission Date: 20191005
  Serious: Yes (Other)
  Sender: FDA-Public Use
  Company Number: US-AMGEN INC.-USASP2019148734

PATIENT
  Age: 35 Year
  Sex: Male
  Weight: 72.56 kg

DRUGS (3)
  1. PROPRANOLOL [Concomitant]
     Active Substance: PROPRANOLOL HYDROCHLORIDE
     Indication: PROPHYLAXIS
     Dosage: 80 MILLIGRAM (2X)
     Dates: start: 2014
  2. IMITREX [Concomitant]
     Active Substance: SUMATRIPTAN SUCCINATE
     Indication: ANALGESIC THERAPY
     Dosage: 100 MILLIGRAM, AS NECESSARY (PRN)
     Dates: start: 2011
  3. AIMOVIG [Suspect]
     Active Substance: ERENUMAB-AOOE
     Indication: MIGRAINE
     Dosage: UNK
     Route: 065
     Dates: start: 20190708

REACTIONS (2)
  - Panic reaction [Unknown]
  - Anxiety [Unknown]

NARRATIVE: CASE EVENT DATE: 20190816
